FAERS Safety Report 6336547-0 (Version None)
Quarter: 2009Q3

REPORT INFORMATION
  Report Type: 
  Country: None (occurrence: None)
  Receive Date: 20090901
  Receipt Date: 20090827
  Transmission Date: 20100115
  Serious: No
  Sender: FDA-Public Use
  Company Number: US-JNJFOC-20090900060

PATIENT
  Sex: Female
  Weight: 90.72 kg

DRUGS (1)
  1. DURAGESIC-100 [Suspect]
     Indication: PAIN
     Route: 062

REACTIONS (2)
  - HYPERHIDROSIS [None]
  - INAPPROPRIATE SCHEDULE OF DRUG ADMINISTRATION [None]
